FAERS Safety Report 10332653 (Version 1)
Quarter: 2014Q3

REPORT INFORMATION
  Report Type: Spontaneous
  Country: US (occurrence: US)
  Receive Date: 20140722
  Receipt Date: 20140722
  Transmission Date: 20150326
  Serious: No
  Sender: FDA-Public Use
  Company Number: US-ASTRAZENECA-2014SE11326

PATIENT
  Age: 55 Year
  Sex: Male
  Weight: 93.9 kg

DRUGS (6)
  1. QUETIAPINE FUMARATE. [Suspect]
     Active Substance: QUETIAPINE FUMARATE
     Indication: SLEEP DISORDER
     Route: 048
     Dates: start: 2009
  2. OXYCONTIN [Concomitant]
     Active Substance: OXYCODONE HYDROCHLORIDE
     Indication: BACK PAIN
     Route: 048
     Dates: start: 2011
  3. CHOLESTEROL MEDICINE (UNSPECIFIED) [Concomitant]
     Indication: BLOOD CHOLESTEROL ABNORMAL
     Dosage: DAILY
     Route: 048
  4. METFORMIN [Concomitant]
     Active Substance: METFORMIN HYDROCHLORIDE
     Indication: DIABETES MELLITUS
     Route: 048
     Dates: start: 2013
  5. BLOOD PRESSURE MEDICINE (UNSPECIFIED) [Concomitant]
     Indication: BLOOD PRESSURE ABNORMAL
  6. QUETIAPINE FUMARATE. [Suspect]
     Active Substance: QUETIAPINE FUMARATE
     Indication: BIPOLAR DISORDER
     Route: 048
     Dates: start: 2009

REACTIONS (5)
  - Asthenia [Unknown]
  - Type 2 diabetes mellitus [Unknown]
  - Dry mouth [Unknown]
  - Hypertension [Unknown]
  - Somnolence [Unknown]

NARRATIVE: CASE EVENT DATE: 2013
